FAERS Safety Report 6256257-8 (Version None)
Quarter: 2009Q3

REPORT INFORMATION
  Report Type: 
  Country: None (occurrence: None)
  Receive Date: 20090706
  Receipt Date: 20090601
  Transmission Date: 20100115
  Serious: No
  Sender: FDA-Public Use
  Company Number: A0787701A

PATIENT
  Age: 42 Year
  Sex: Male

DRUGS (2)
  1. ADVAIR HFA [Suspect]
     Indication: ASTHMA
     Dosage: 1PUFF PER DAY
     Route: 055
     Dates: start: 20070101, end: 20090520
  2. NO CONCURRENT MEDICATION [Concomitant]

REACTIONS (1)
  - HEART RATE INCREASED [None]
